FAERS Safety Report 7430875-3 (Version None)
Quarter: 2011Q2

REPORT INFORMATION
  Report Type: 
  Country: None (occurrence: None)
  Receive Date: 20110421
  Receipt Date: 20110412
  Transmission Date: 20111010
  Serious: Yes (Other)
  Sender: FDA-Public Use
  Company Number: US-BRISTOL-MYERS SQUIBB COMPANY-15670573

PATIENT

DRUGS (3)
  1. METFORMIN HCL [Suspect]
  2. LANTUS [Suspect]
     Indication: TYPE 2 DIABETES MELLITUS
     Dosage: 1 DF: 100 IU/ML INJ,SOLN;PARENTERAL
     Route: 058
  3. NOVOLOG [Suspect]

REACTIONS (1)
  - LATENT AUTOIMMUNE DIABETES IN ADULTS [None]
